FAERS Safety Report 7338887-5 (Version None)
Quarter: 2011Q1

REPORT INFORMATION
  Report Type: 
  Country: None (occurrence: None)
  Receive Date: 20110308
  Receipt Date: 20110302
  Transmission Date: 20110831
  Serious: Yes (Hospitalization, Other)
  Sender: FDA-Public Use
  Company Number: US-PFIZER INC-2010167389

PATIENT
  Sex: Female
  Weight: 82 kg

DRUGS (4)
  1. TIKOSYN [Suspect]
     Dosage: 500 UG, 2X/DAY
     Route: 048
  2. TIKOSYN [Suspect]
     Indication: ATRIAL FIBRILLATION
     Dosage: 250 UG, 2X/DAY
     Route: 048
  3. PREVACID [Concomitant]
     Indication: CARDIAC DISORDER
     Dosage: 30 MG, 1X/DAY
     Route: 048
  4. ACETYLSALICYLIC ACID [Concomitant]
     Indication: CARDIAC DISORDER
     Dosage: 81 MG, ALTERNATE DAY
     Route: 048
     Dates: start: 20090330

REACTIONS (9)
  - ADJUSTMENT DISORDER WITH MIXED ANXIETY AND DEPRESSED MOOD [None]
  - FEELING OF BODY TEMPERATURE CHANGE [None]
  - PLEURISY [None]
  - CHEST PAIN [None]
  - ATRIAL FIBRILLATION [None]
  - FORMICATION [None]
  - THIRST [None]
  - RENAL FAILURE CHRONIC [None]
  - DECREASED APPETITE [None]
